FAERS Safety Report 4621131-7 (Version None)
Quarter: 2005Q1

REPORT INFORMATION
  Report Type: 
  Country: None (occurrence: None)
  Receive Date: 20050328
  Receipt Date: 20050317
  Transmission Date: 20050727
  Serious: Yes (Hospitalization)
  Sender: FDA-Public Use
  Company Number: 2005PK00475

PATIENT
  Age: 61 Year
  Sex: Female

DRUGS (2)
  1. NOLVADEX [Suspect]
     Indication: BREAST CANCER
     Dosage: 20 MG DAILY PO
     Route: 048
     Dates: start: 20030201
  2. PRAVACHOL [Concomitant]

REACTIONS (3)
  - SCINTILLATING SCOTOMA [None]
  - TRANSIENT ISCHAEMIC ATTACK [None]
  - VASOSPASM [None]
